FAERS Safety Report 8971106 (Version 1)
Quarter: 2012Q4

REPORT INFORMATION
  Report Type: 
  Country: US (occurrence: US)
  Receive Date: 20121218
  Receipt Date: 20121218
  Transmission Date: 20130627
  Serious: Yes (Death)
  Sender: FDA-Public Use
  Company Number: US-ASTELLAS-2012US012294

PATIENT
  Age: 62 Year
  Sex: Male

DRUGS (1)
  1. PROGRAF [Suspect]
     Indication: TRANSPLANT
     Dosage: 4.5 mg, Q12 hours
     Route: 048
     Dates: start: 20120210, end: 20120306

REACTIONS (1)
  - Death [Fatal]
